FAERS Safety Report 21492039 (Version 1)
Quarter: 2022Q4

REPORT INFORMATION
  Report Type: Spontaneous
  Country: US (occurrence: US)
  Receive Date: 20221021
  Receipt Date: 20221021
  Transmission Date: 20230113
  Serious: No
  Sender: FDA-Public Use
  Company Number: US-GSKCCFUS-Case-01532864_AE-86856

PATIENT

DRUGS (2)
  1. SOTROVIMAB [Interacting]
     Active Substance: SOTROVIMAB
     Indication: COVID-19
     Dosage: 500 MG
     Dates: start: 202201
  2. RITUXIMAB [Interacting]
     Active Substance: RITUXIMAB
     Indication: Marginal zone lymphoma
     Dosage: UNK
     Dates: start: 202208

REACTIONS (1)
  - Drug interaction [Unknown]

NARRATIVE: CASE EVENT DATE: 20220101
